FAERS Safety Report 15834032 (Version 2)
Quarter: 2019Q1

REPORT INFORMATION
  Report Type: Report from Study
  Country: MX (occurrence: MX)
  Receive Date: 20190116
  Receipt Date: 20190125
  Transmission Date: 20190417
  Serious: Yes (Death, Hospitalization)
  Sender: FDA-Public Use
  Company Number: PHHY2019MX008882

PATIENT
  Age: 70 Year
  Sex: Male
  Weight: 70 kg

DRUGS (1)
  1. REVOLADE [Suspect]
     Active Substance: ELTROMBOPAG
     Indication: LYMPHOMA
     Dosage: 1 DF, QD
     Route: 048

REACTIONS (5)
  - Renal failure [Fatal]
  - Platelet count decreased [Fatal]
  - Blood glucose increased [Fatal]
  - Product use in unapproved indication [Unknown]
  - Malaise [Fatal]

NARRATIVE: CASE EVENT DATE: 20181106
